FAERS Safety Report 11532209 (Version 1)
Quarter: 2015Q3

REPORT INFORMATION
  Report Type: Spontaneous
  Country: US (occurrence: US)
  Receive Date: 20150921
  Receipt Date: 20150921
  Transmission Date: 20151125
  Serious: No
  Sender: FDA-Public Use
  Company Number: US-SHIRE-US201511546

PATIENT
  Sex: Female
  Weight: 74.83 kg

DRUGS (4)
  1. LIALDA [Suspect]
     Active Substance: MESALAMINE
     Indication: COLITIS ULCERATIVE
     Dosage: 2.4 G (TWO 1.2 G TABLETS), 1X/DAY:QD (AT NOON)
     Route: 048
     Dates: start: 201211
  2. LEVOTHYROXINE. [Concomitant]
     Active Substance: LEVOTHYROXINE
     Indication: HYPOTHYROIDISM
     Dosage: 88 ?G, 1X/DAY:QD
     Route: 065
     Dates: start: 1989
  3. LIPITOR [Concomitant]
     Active Substance: ATORVASTATIN CALCIUM
     Indication: BLOOD CHOLESTEROL INCREASED
     Dosage: 10 MG, 1X/DAY:QD
     Route: 065
     Dates: start: 2005
  4. PRILOSEC [Suspect]
     Active Substance: OMEPRAZOLE MAGNESIUM
     Indication: DYSPEPSIA
     Dosage: UNK, UNKNOWN
     Route: 065
     Dates: start: 201412, end: 20150630

REACTIONS (5)
  - Reflux gastritis [Unknown]
  - Pyrexia [Recovered/Resolved]
  - Hiatus hernia [Unknown]
  - Diarrhoea [Recovered/Resolved]
  - Palpitations [Recovered/Resolved]

NARRATIVE: CASE EVENT DATE: 2014
